FAERS Safety Report 7347449-5 (Version None)
Quarter: 2011Q1

REPORT INFORMATION
  Report Type: 
  Country: None (occurrence: None)
  Receive Date: 20110311
  Receipt Date: 20110302
  Transmission Date: 20110831
  Serious: Yes (Hospitalization)
  Sender: FDA-Public Use
  Company Number: PHHO2011FR04002

PATIENT
  Sex: Female
  Weight: 57 kg

DRUGS (1)
  1. STI571/CGP57148B [Suspect]
     Indication: ACUTE LYMPHOCYTIC LEUKAEMIA
     Dosage: UNK

REACTIONS (12)
  - URINARY TRACT INFECTION ENTEROCOCCAL [None]
  - RESPIRATORY DISTRESS [None]
  - OCULAR HYPERAEMIA [None]
  - EYE PAIN [None]
  - FEEDING DISORDER [None]
  - DIARRHOEA [None]
  - APLASIA [None]
  - IRIDOCYCLITIS [None]
  - NAUSEA [None]
  - STREPTOCOCCAL BACTERAEMIA [None]
  - EYE DISORDER [None]
  - SEPSIS [None]
